FAERS Safety Report 18623052 (Version 1)
Quarter: 2020Q4

REPORT INFORMATION
  Report Type: Spontaneous
  Country: TR (occurrence: TR)
  Receive Date: 20201216
  Receipt Date: 20201216
  Transmission Date: 20210114
  Serious: Yes (Other)
  Sender: FDA-Public Use
  Company Number: TR-LUPIN PHARMACEUTICALS INC.-2020-04337

PATIENT
  Age: 27 Year
  Sex: Female

DRUGS (1)
  1. MISOPROSTOL. [Suspect]
     Active Substance: MISOPROSTOL
     Indication: ABORTION INDUCED
     Dosage: 400 MICROGRAM, SINGLE
     Route: 067

REACTIONS (3)
  - Off label use [Unknown]
  - Uterine rupture [Unknown]
  - Maternal exposure during pregnancy [Unknown]
